FAERS Safety Report 5874905-9 (Version None)
Quarter: 2008Q3

REPORT INFORMATION
  Report Type: 
  Country: None (occurrence: None)
  Receive Date: 20080904
  Receipt Date: 20080826
  Transmission Date: 20090109
  Serious: Yes (Hospitalization)
  Sender: FDA-Public Use
  Company Number: 2008JP003684

PATIENT
  Age: 69 Year
  Sex: Female

DRUGS (17)
  1. TACROLIMUS [Suspect]
     Indication: LUPUS NEPHRITIS
     Dosage: 3 MG, ORAL
     Route: 048
     Dates: start: 20071109
  2. NOVORAPID(INSULIN ASPART) INJECTION [Suspect]
     Indication: TYPE 2 DIABETES MELLITUS
     Dosage: 16 IU,; 22 IU,; 20 IU,
     Dates: start: 20080515, end: 20080528
  3. NOVORAPID(INSULIN ASPART) INJECTION [Suspect]
     Indication: TYPE 2 DIABETES MELLITUS
     Dosage: 16 IU,; 22 IU,; 20 IU,
     Dates: start: 20080529, end: 20080612
  4. NOVORAPID(INSULIN ASPART) INJECTION [Suspect]
     Indication: TYPE 2 DIABETES MELLITUS
     Dosage: 16 IU,; 22 IU,; 20 IU,
     Dates: start: 20080613
  5. PREDNISOLONE [Suspect]
     Indication: LUPUS NEPHRITIS
     Dosage: 10 MG, ORAL; 7.5 MG, ORAL
     Route: 048
     Dates: end: 20080603
  6. PREDNISOLONE [Suspect]
     Indication: LUPUS NEPHRITIS
     Dosage: 10 MG, ORAL; 7.5 MG, ORAL
     Route: 048
     Dates: start: 20080604
  7. FLUITRAN (TRICHLORMETHIAZIDE) PER ORAL NOS [Concomitant]
  8. AMLODINE (AMLODIPINE) ORODISPERSIBLE CR TABLET [Concomitant]
  9. ONEALFA (ALFACALCIDOL) PER ORAL NOS [Concomitant]
  10. TENORMIN (ATENOLOL) PER ORAL NOS [Concomitant]
  11. LIPITOR (ATORVASTATIN CALCIUM) PER ORAL NOS [Concomitant]
  12. SELBEX (TEPRENONE) CAPSULE [Concomitant]
  13. STARSIS (NATEGLINIDE) PER ORAL NOS [Concomitant]
  14. PERSANTIN (DIPYRIDAMOLE) PER ORAL NOS [Concomitant]
  15. OLMETEC (OLMESARTAN MEDOXOMIL) PER ORAL NOS [Concomitant]
  16. MIGLITOL PER ORAL NOS [Concomitant]
  17. SLOW-K (POTASSIUM CHLORIDE) PER ORAL NOS [Concomitant]

REACTIONS (7)
  - BETA 2 MICROGLOBULIN URINE INCREASED [None]
  - HYPERURICAEMIA [None]
  - HYPOALBUMINAEMIA [None]
  - HYPOKALAEMIA [None]
  - PROTEINURIA [None]
  - TYPE 2 DIABETES MELLITUS [None]
  - URINARY CASTS [None]
